FAERS Safety Report 17741143 (Version 4)
Quarter: 2020Q3

REPORT INFORMATION
  Report Type: Report from Study
  Country: US (occurrence: US)
  Receive Date: 20200504
  Receipt Date: 20200709
  Transmission Date: 20201102
  Serious: No
  Sender: FDA-Public Use
  Company Number: NVSC2020US119977

PATIENT
  Age: 63 Year
  Sex: Male

DRUGS (3)
  1. COSENTYX [Suspect]
     Active Substance: SECUKINUMAB
     Indication: PSORIASIS
     Dosage: 300 MG, QMO
     Route: 058
     Dates: start: 20200419
  2. COSENTYX [Suspect]
     Active Substance: SECUKINUMAB
     Dosage: 300 MG, QMO
     Route: 058
     Dates: start: 20200517
  3. COSENTYX [Suspect]
     Active Substance: SECUKINUMAB
     Indication: PSORIASIS
     Dosage: 300 MG, QMO, (BENEATH THE SKIN, USUALLY VIA SKIN)
     Route: 058
     Dates: start: 201912

REACTIONS (7)
  - Chest discomfort [Recovering/Resolving]
  - Dysphagia [Recovering/Resolving]
  - Oral infection [Recovering/Resolving]
  - Psoriasis [Recovered/Resolved]
  - Oral discomfort [Recovering/Resolving]
  - Oral candidiasis [Recovering/Resolving]
  - Cough [Recovered/Resolved]

NARRATIVE: CASE EVENT DATE: 202001
